FAERS Safety Report 14036605 (Version 1)
Quarter: 2017Q4

REPORT INFORMATION
  Report Type: Spontaneous
  Country: US (occurrence: US)
  Receive Date: 20171003
  Receipt Date: 20171003
  Transmission Date: 20180321
  Serious: No
  Sender: FDA-Public Use
  Company Number: US-ROCHE-1847860

PATIENT
  Age: 82 Year
  Sex: Female

DRUGS (3)
  1. COTELLIC [Suspect]
     Active Substance: COBIMETINIB
     Indication: PRODUCT USED FOR UNKNOWN INDICATION
     Dosage: FOR 21 DAYS ON 7 DAYS
     Route: 065
     Dates: end: 201605
  2. COTELLIC [Suspect]
     Active Substance: COBIMETINIB
     Route: 065
     Dates: start: 20160926
  3. ZELBORAF [Suspect]
     Active Substance: VEMURAFENIB
     Indication: MALIGNANT MELANOMA
     Route: 048
     Dates: start: 20160502

REACTIONS (4)
  - Myalgia [Unknown]
  - Visual acuity reduced [Unknown]
  - Visual impairment [Unknown]
  - Muscular weakness [Unknown]

NARRATIVE: CASE EVENT DATE: 201609
